FAERS Safety Report 10056424 (Version 1)
Quarter: 2014Q2

REPORT INFORMATION
  Report Type: Spontaneous
  Country: US (occurrence: US)
  Receive Date: 20140403
  Receipt Date: 20140403
  Transmission Date: 20141212
  Serious: Yes (Death)
  Sender: FDA-Public Use
  Company Number: US-BAXTER-2014BAX015734

PATIENT
  Age: 87 Year
  Sex: Female
  Weight: 52.27 kg

DRUGS (2)
  1. DIANEAL LOW CALCIUM [Suspect]
     Indication: RENAL FAILURE CHRONIC
     Route: 033
     Dates: start: 2008, end: 20140303
  2. DIANEAL LOW CALCIUM [Suspect]
     Indication: PERITONEAL DIALYSIS

REACTIONS (4)
  - Refusal of treatment by patient [Fatal]
  - Hypophagia [Fatal]
  - Malnutrition [Fatal]
  - Renal failure chronic [Fatal]
